FAERS Safety Report 9187360 (Version 1)
Quarter: 2012Q4

REPORT INFORMATION
  Report Type: Report from Study
  Country: US (occurrence: US)
  Receive Date: 20121114
  Receipt Date: 20121114
  Transmission Date: 20130627
  Serious: No
  Sender: FDA-Public Use
  Company Number: US-ABBOTT-12P-163-0945391-00

PATIENT
  Sex: Male
  Weight: 113.5 kg

DRUGS (1)
  1. TRICOR TABLETS [Suspect]
     Indication: PRODUCT USED FOR UNKNOWN INDICATION

REACTIONS (2)
  - Feeling drunk [Unknown]
  - Dizziness [Unknown]
